FAERS Safety Report 5297484-6 (Version None)
Quarter: 2007Q2

REPORT INFORMATION
  Report Type: 
  Country: None (occurrence: None)
  Receive Date: 20070409
  Receipt Date: 20070329
  Transmission Date: 20071010
  Serious: Yes (Life-Threatening)
  Sender: FDA-Public Use
  Company Number: 2007SP000768

PATIENT
  Age: 61 Year
  Sex: Male
  Weight: 55 kg

DRUGS (10)
  1. TEMODAL [Suspect]
     Indication: ANAPLASTIC ASTROCYTOMA
     Dosage: SEE IMAGE
     Route: 048
     Dates: start: 20061008, end: 20061013
  2. TEMODAL [Suspect]
     Indication: RECURRENT CANCER
     Dosage: SEE IMAGE
     Route: 048
     Dates: start: 20061008, end: 20061013
  3. TEMODAL [Suspect]
     Indication: ANAPLASTIC ASTROCYTOMA
     Dosage: SEE IMAGE
     Route: 048
     Dates: start: 20061106, end: 20061110
  4. TEMODAL [Suspect]
     Indication: RECURRENT CANCER
     Dosage: SEE IMAGE
     Route: 048
     Dates: start: 20061106, end: 20061110
  5. TEMODAL [Suspect]
     Indication: ANAPLASTIC ASTROCYTOMA
     Dosage: SEE IMAGE
     Route: 048
     Dates: start: 20061204, end: 20061208
  6. TEMODAL [Suspect]
     Indication: RECURRENT CANCER
     Dosage: SEE IMAGE
     Route: 048
     Dates: start: 20061204, end: 20061208
  7. DEPAKENE R (CON.) [Concomitant]
  8. DAONIL (CON.) [Concomitant]
  9. GLIMICRON (CON.) [Concomitant]
  10. ABILIT (CON.) [Concomitant]

REACTIONS (5)
  - BLOOD CULTURE POSITIVE [None]
  - CARDIO-RESPIRATORY ARREST [None]
  - DISSEMINATED INTRAVASCULAR COAGULATION [None]
  - SHOCK [None]
  - STAPHYLOCOCCAL INFECTION [None]
